FAERS Safety Report 7996205-3 (Version None)
Quarter: 2011Q4

REPORT INFORMATION
  Report Type: 
  Country: None (occurrence: None)
  Receive Date: 20111220
  Receipt Date: 20111216
  Transmission Date: 20120403
  Serious: Yes (Death)
  Sender: FDA-Public Use
  Company Number: PHHY2011MA110214

PATIENT
  Sex: Female

DRUGS (1)
  1. GLEEVEC [Suspect]
     Indication: CHRONIC MYELOID LEUKAEMIA
     Dosage: 400 MG, DAILY
     Route: 048
     Dates: start: 20101217, end: 20111101

REACTIONS (3)
  - CHRONIC MYELOID LEUKAEMIA [None]
  - BRAIN NEOPLASM [None]
  - NEOPLASM MALIGNANT [None]
